FAERS Safety Report 24106568 (Version 1)
Quarter: 2024Q3

REPORT INFORMATION
  Report Type: Spontaneous
  Country: CN (occurrence: CN)
  Receive Date: 20240717
  Receipt Date: 20240717
  Transmission Date: 20241017
  Serious: Yes (Hospitalization)
  Sender: FRESENIUS KABI
  Company Number: CN-FreseniusKabi-FK202411050

PATIENT
  Age: 82 Year
  Sex: Female
  Weight: 50 kg

DRUGS (1)
  1. EGG PHOSPHOLIPIDS\GLYCERIN\MEDIUM-CHAIN TRIGLYCERIDES\SOYBEAN OIL [Suspect]
     Active Substance: EGG PHOSPHOLIPIDS\GLYCERIN\MEDIUM-CHAIN TRIGLYCERIDES\SOYBEAN OIL
     Indication: Malnutrition
     Dosage: FORM OF ADMIN: INJECTION?START TIME: 10:00
     Route: 041
     Dates: start: 20240710, end: 20240710

REACTIONS (3)
  - Body temperature increased [Recovered/Resolved]
  - Temperature intolerance [Recovering/Resolving]
  - Chills [Recovering/Resolving]

NARRATIVE: CASE EVENT DATE: 20240710
